FAERS Safety Report 10674292 (Version 1)
Quarter: 2014Q4

REPORT INFORMATION
  Report Type: Spontaneous
  Country: GB (occurrence: GB)
  Receive Date: 20141224
  Receipt Date: 20141224
  Transmission Date: 20150529
  Serious: Yes (Other)
  Sender: FDA-Public Use
  Company Number: PHHY2014GB164960

PATIENT
  Age: 21 Year
  Sex: Male
  Weight: 65 kg

DRUGS (4)
  1. PARACETAMOL [Concomitant]
     Active Substance: ACETAMINOPHEN
     Indication: PRODUCT USED FOR UNKNOWN INDICATION
     Dosage: 1 G, (DATE STARTED WAS 2 WEEKS PRIOR TO THE DATE STARTED FOR THE SUSPECT DRUGS)
     Route: 048
     Dates: start: 20141107
  2. SPECTINOMYCIN. [Suspect]
     Active Substance: SPECTINOMYCIN
     Indication: PRODUCT USED FOR UNKNOWN INDICATION
     Dosage: 2 G, (STAT DOSE)
     Route: 030
     Dates: start: 20141121, end: 20141121
  3. AZITHROMYCIN [Suspect]
     Active Substance: AZITHROMYCIN ANHYDROUS
     Indication: PRODUCT USED FOR UNKNOWN INDICATION
     Dosage: 1 G, (STAT DOSE)
     Route: 048
     Dates: start: 20141121, end: 20141121
  4. IBUPROFEN. [Concomitant]
     Active Substance: IBUPROFEN
     Indication: PRODUCT USED FOR UNKNOWN INDICATION
     Dosage: 400 MG, (200-400MG. THE DATE STARTED WAS 2 WEEKS PRIOR TO THE SUSPECT DRUGS)
     Route: 048
     Dates: start: 20141107

REACTIONS (6)
  - Dry mouth [Recovered/Resolved]
  - Panic attack [Recovered/Resolved]
  - Dyspnoea [Recovered/Resolved]
  - Back pain [Recovered/Resolved]
  - Pharyngeal oedema [Recovered/Resolved]
  - Chest discomfort [Recovered/Resolved]

NARRATIVE: CASE EVENT DATE: 20141121
